FAERS Safety Report 17497999 (Version 3)
Quarter: 2025Q2

REPORT INFORMATION
  Report Type: Spontaneous
  Country: RO (occurrence: RO)
  Receive Date: 20200304
  Receipt Date: 20250628
  Transmission Date: 20250717
  Serious: Yes (Hospitalization, Other)
  Sender: UCB
  Company Number: RO-UCBSA-2020008218

PATIENT
  Age: 33 Year
  Sex: Male

DRUGS (4)
  1. KEPPRA [Suspect]
     Active Substance: LEVETIRACETAM
     Indication: Epilepsy
  2. CARBAMAZEPINE [Suspect]
     Active Substance: CARBAMAZEPINE
     Indication: Epilepsy
  3. CLONAZEPAM [Suspect]
     Active Substance: CLONAZEPAM
     Indication: Epilepsy
  4. PHENOBARBITAL [Suspect]
     Active Substance: PHENOBARBITAL
     Indication: Epilepsy

REACTIONS (5)
  - Craniocerebral injury [Recovering/Resolving]
  - Subdural haematoma [Recovering/Resolving]
  - Extradural haematoma [Recovering/Resolving]
  - Coma [Recovering/Resolving]
  - Multiple-drug resistance [Unknown]

NARRATIVE: CASE EVENT DATE: 20190502
